FAERS Safety Report 21880703 (Version 1)
Quarter: 2023Q1

REPORT INFORMATION
  Report Type: Spontaneous
  Country: US (occurrence: None)
  Receive Date: 20230117
  Receipt Date: 20230117
  Transmission Date: 20230418
  Serious: Yes (Life-Threatening)
  Sender: FDA-Public Use
  Company Number: None

PATIENT
  Age: 75 Year
  Sex: Male

DRUGS (7)
  1. REPATHA [Suspect]
     Active Substance: EVOLOCUMAB
     Indication: Type IIa hyperlipidaemia
     Dosage: FREQUENCY : MONTHLY;?
     Route: 058
     Dates: start: 20230109, end: 20230109
  2. ASPIRIN EC LOW DOSE TABLETS [Concomitant]
  3. CLOPIDOGREL [Concomitant]
     Active Substance: CLOPIDOGREL BISULFATE
  4. CALCIUM W/D TABLETS G/S [Concomitant]
  5. MAGNESIUM CHW TABLETS [Concomitant]
  6. VITAMIN C TABLETS [Concomitant]
  7. VITAMIN D3 SOFTGEL CAPS [Concomitant]

REACTIONS (4)
  - Nasopharyngitis [None]
  - Influenza [None]
  - Injection site pain [None]
  - Dyspnoea [None]

NARRATIVE: CASE EVENT DATE: 20230109
